FAERS Safety Report 14681999 (Version 1)
Quarter: 2018Q1

REPORT INFORMATION
  Report Type: Spontaneous
  Country: US (occurrence: US)
  Receive Date: 20180326
  Receipt Date: 20180326
  Transmission Date: 20180509
  Serious: No
  Sender: FDA-Public Use
  Company Number: US-009507513-1803USA009503

PATIENT
  Age: 29 Year
  Sex: Female
  Weight: 142.4 kg

DRUGS (1)
  1. NEXPLANON [Suspect]
     Active Substance: ETONOGESTREL
     Dosage: 1 DF (ROD), EVERY 3 YEARS
     Route: 059
     Dates: start: 201411

REACTIONS (5)
  - Encapsulation reaction [Unknown]
  - Incorrect drug administration duration [Unknown]
  - No adverse event [Unknown]
  - Complication of device removal [Not Recovered/Not Resolved]
  - Device breakage [Not Recovered/Not Resolved]

NARRATIVE: CASE EVENT DATE: 201712
